FAERS Safety Report 9638582 (Version 1)
Quarter: 2013Q4

REPORT INFORMATION
  Report Type: Spontaneous
  Country: FR (occurrence: FR)
  Receive Date: 20131022
  Receipt Date: 20131022
  Transmission Date: 20140711
  Serious: Yes (Life-Threatening, Hospitalization)
  Sender: FDA-Public Use
  Company Number: FR-BRISTOL-MYERS SQUIBB COMPANY-19544949

PATIENT
  Age: 65 Year
  Sex: Female

DRUGS (7)
  1. ABILIFY TABS 10 MG [Suspect]
     Route: 048
     Dates: start: 201210, end: 20130720
  2. PRAVASTATIN SODIUM [Suspect]
     Route: 048
     Dates: start: 201210
  3. ESPERAL [Suspect]
     Route: 048
     Dates: start: 201210
  4. SERESTA [Suspect]
     Dosage: 0.5/DAY,ORALLY
     Route: 048
     Dates: start: 201210
  5. ARIMIDEX [Suspect]
     Route: 048
     Dates: start: 201210
  6. NOCTAMIDE [Suspect]
     Route: 048
     Dates: start: 201210
  7. OXYBUTYNIN [Suspect]
     Route: 048
     Dates: start: 201210

REACTIONS (3)
  - Inappropriate antidiuretic hormone secretion [Recovered/Resolved]
  - Grand mal convulsion [Recovered/Resolved]
  - Rhabdomyolysis [Recovered/Resolved]
